FAERS Safety Report 18376168 (Version 1)
Quarter: 2020Q4

REPORT INFORMATION
  Report Type: Spontaneous
  Country: US (occurrence: US)
  Receive Date: 20201009
  Receipt Date: 20201009
  Transmission Date: 20210114
  Serious: Yes (Other)
  Sender: FDA-Public Use
  Company Number: None

PATIENT
  Age: 57 Year
  Sex: Male

DRUGS (1)
  1. REVLIMID [Suspect]
     Active Substance: LENALIDOMIDE
     Indication: PLASMA CELL MYELOMA
     Route: 048
     Dates: start: 20200731

REACTIONS (4)
  - Respiratory failure [None]
  - Pyrexia [None]
  - Dyspnoea [None]
  - Deep vein thrombosis [None]

NARRATIVE: CASE EVENT DATE: 20200824
